FAERS Safety Report 17049613 (Version 3)
Quarter: 2020Q2

REPORT INFORMATION
  Report Type: Report from Study
  Country: US (occurrence: US)
  Receive Date: 20191119
  Receipt Date: 20200408
  Transmission Date: 20200713
  Serious: Yes (Hospitalization, Other)
  Sender: FDA-Public Use
  Company Number: US-BRISTOL-MYERS SQUIBB COMPANY-BMS-2019-109191

PATIENT
  Age: 68 Year
  Sex: Male
  Weight: 78.9 kg

DRUGS (3)
  1. NIVOLUMAB [Suspect]
     Active Substance: NIVOLUMAB
     Indication: GLIOBLASTOMA MULTIFORME
     Dosage: 240 MILLIGRAM, Q2WK
     Route: 042
     Dates: start: 20190904, end: 20191030
  2. AGLATIMAGENE BESADENOVEC [Suspect]
     Active Substance: AGLATIMAGENE BESADENOVEC
     Indication: GLIOBLASTOMA MULTIFORME
     Dosage: 1 MILLILITER, TOTAL DOSE ADMINSTERED DURING COURSE 1
     Route: 065
     Dates: start: 20190816, end: 20190816
  3. VALACICLOVIR [Suspect]
     Active Substance: VALACYCLOVIR HYDROCHLORIDE
     Indication: GLIOBLASTOMA MULTIFORME
     Dosage: 8400 MILLIGRAM TOTAL DOSE ADMINSTERED DURING COURSE 1
     Route: 065
     Dates: start: 20190819, end: 20190901

REACTIONS (3)
  - Confusional state [Recovered/Resolved with Sequelae]
  - Neurologic neglect syndrome [Recovered/Resolved with Sequelae]
  - Seizure [Recovered/Resolved with Sequelae]

NARRATIVE: CASE EVENT DATE: 20191108
